FAERS Safety Report 12116717 (Version 13)
Quarter: 2017Q4

REPORT INFORMATION
  Report Type: Spontaneous
  Country: SE (occurrence: SE)
  Receive Date: 20160225
  Receipt Date: 20171106
  Transmission Date: 20180320
  Serious: Yes (Death, Hospitalization)
  Sender: FDA-Public Use
  Company Number: SE-SA-2016SA037008

PATIENT
  Age: 39 Year
  Sex: Female

DRUGS (5)
  1. SOLU-MEDROL [Concomitant]
     Active Substance: METHYLPREDNISOLONE SODIUM SUCCINATE
     Route: 065
  2. LORATADINE. [Concomitant]
     Active Substance: LORATADINE
     Route: 065
  3. LEMTRADA [Suspect]
     Active Substance: ALEMTUZUMAB
     Indication: MULTIPLE SCLEROSIS
     Route: 041
     Dates: start: 20160208, end: 20160212
  4. ACICLOVIR SANDOZ [Concomitant]
     Active Substance: ACYCLOVIR
     Indication: PROPHYLAXIS
     Route: 065
     Dates: start: 20160204
  5. ALVEDON [Concomitant]
     Active Substance: ACETAMINOPHEN
     Route: 065

REACTIONS (27)
  - Hepatic failure [Fatal]
  - Cytomegalovirus hepatitis [Fatal]
  - Herpes virus infection [Fatal]
  - Circulatory collapse [Fatal]
  - Abdominal pain [Fatal]
  - Haemoglobin increased [Fatal]
  - Hepatic function abnormal [Fatal]
  - Hepatic enzyme increased [Fatal]
  - C-reactive protein increased [Fatal]
  - Viral test positive [Fatal]
  - Adenovirus infection [Fatal]
  - Blood pressure decreased [Fatal]
  - Alanine aminotransferase increased [Fatal]
  - Infusion related reaction [Unknown]
  - Ascites [Fatal]
  - Vomiting [Fatal]
  - Malaise [Fatal]
  - Dehydration [Fatal]
  - Infection reactivation [Fatal]
  - Colitis [Fatal]
  - Diarrhoea [Fatal]
  - White blood cell count increased [Fatal]
  - Multiple organ dysfunction syndrome [Fatal]
  - Cytomegalovirus infection [Fatal]
  - Epstein-Barr virus infection [Fatal]
  - Coagulopathy [Fatal]
  - Diarrhoea haemorrhagic [Fatal]

NARRATIVE: CASE EVENT DATE: 201602
